FAERS Safety Report 5909808-4 (Version None)
Quarter: 2008Q4

REPORT INFORMATION
  Report Type: 
  Country: None (occurrence: None)
  Receive Date: 20081007
  Receipt Date: 20080812
  Transmission Date: 20090506
  Serious: No
  Sender: FDA-Public Use
  Company Number: US-BAYER-200831381NA

PATIENT
  Age: 25 Year
  Sex: Female
  Weight: 46 kg

DRUGS (1)
  1. OCELLA TABLETS [Suspect]
     Indication: ACNE
     Route: 048
     Dates: start: 20080810

REACTIONS (3)
  - DRUG USE FOR UNKNOWN INDICATION [None]
  - HEADACHE [None]
  - NAUSEA [None]
